FAERS Safety Report 23789505 (Version 1)
Quarter: 2024Q2

REPORT INFORMATION
  Report Type: Spontaneous
  Country: HR (occurrence: HR)
  Receive Date: 20240426
  Receipt Date: 20240426
  Transmission Date: 20240715
  Serious: Yes (Other)
  Sender: FDA-Public Use
  Company Number: HR-009507513-2404HRV010933

PATIENT
  Age: 55 Year
  Sex: Male

DRUGS (11)
  1. KEYTRUDA [Suspect]
     Active Substance: PEMBROLIZUMAB
     Indication: Lung neoplasm
     Dosage: UNK
     Dates: start: 202305
  2. KEYTRUDA [Suspect]
     Active Substance: PEMBROLIZUMAB
     Dosage: UNK
     Dates: start: 202308
  3. KEYTRUDA [Suspect]
     Active Substance: PEMBROLIZUMAB
     Dosage: UNK
     Dates: start: 202308
  4. KEYTRUDA [Suspect]
     Active Substance: PEMBROLIZUMAB
     Dosage: UNK
     Dates: start: 202309
  5. KEYTRUDA [Suspect]
     Active Substance: PEMBROLIZUMAB
     Dosage: UNK
     Dates: start: 202404
  6. CARBOPLATIN [Suspect]
     Active Substance: CARBOPLATIN
     Indication: Lung neoplasm
     Dosage: UNK
     Dates: start: 202305
  7. CARBOPLATIN [Suspect]
     Active Substance: CARBOPLATIN
     Dosage: UNK
     Dates: start: 202308
  8. CARBOPLATIN [Suspect]
     Active Substance: CARBOPLATIN
     Dosage: UNK
     Dates: start: 202309
  9. PACLITAXEL [Suspect]
     Active Substance: PACLITAXEL
     Indication: Lung neoplasm
     Dosage: UNK
     Dates: start: 202305
  10. PACLITAXEL [Suspect]
     Active Substance: PACLITAXEL
     Dosage: UNK
     Dates: start: 202308
  11. PACLITAXEL [Suspect]
     Active Substance: PACLITAXEL
     Dosage: UNK
     Dates: start: 202309

REACTIONS (5)
  - Necrosis [Unknown]
  - Thyroiditis [Unknown]
  - Inflammatory marker increased [Unknown]
  - Fatigue [Unknown]
  - Dermatitis [Unknown]

NARRATIVE: CASE EVENT DATE: 20230101
